FAERS Safety Report 8168083-3 (Version None)
Quarter: 2012Q1

REPORT INFORMATION
  Report Type: 
  Country: None (occurrence: None)
  Receive Date: 20120227
  Receipt Date: 20120216
  Transmission Date: 20120608
  Serious: Yes (Hospitalization, Other)
  Sender: FDA-Public Use
  Company Number: PHHY2012FR014025

PATIENT
  Sex: Female

DRUGS (5)
  1. ATORVASTATIN [Concomitant]
  2. DIURETICS [Concomitant]
  3. RASILEZ HCT [Suspect]
     Indication: HYPERTENSION
     Dosage: 1 DF, QD
     Route: 048
     Dates: start: 20111118, end: 20120104
  4. LEVOTHYROXINE SODIUM [Concomitant]
  5. SOTALOL HCL [Concomitant]

REACTIONS (18)
  - GENERAL PHYSICAL HEALTH DETERIORATION [None]
  - CONFUSIONAL STATE [None]
  - FALL [None]
  - HYPOCALCAEMIA [None]
  - PSYCHOMOTOR RETARDATION [None]
  - TACHYPNOEA [None]
  - MALAISE [None]
  - ATRIAL FIBRILLATION [None]
  - MUTISM [None]
  - MUSCULAR WEAKNESS [None]
  - DISORIENTATION [None]
  - HYPOKALAEMIA [None]
  - CEREBRAL ATROPHY [None]
  - HYPONATRAEMIA [None]
  - ALKALOSIS [None]
  - HYPOCHLORAEMIA [None]
  - BRONCHIAL OBSTRUCTION [None]
  - COUGH [None]
